FAERS Safety Report 6936112-8 (Version None)
Quarter: 2010Q3

REPORT INFORMATION
  Report Type: 
  Country: None (occurrence: None)
  Receive Date: 20100819
  Receipt Date: 20100819
  Transmission Date: 20110219
  Serious: Yes (Hospitalization)
  Sender: FDA-Public Use
  Company Number: None

PATIENT
  Sex: Female
  Weight: 65 kg

DRUGS (1)
  1. YAZ [Suspect]
     Indication: MENSTRUAL CYCLE MANAGEMENT
     Dosage: 1 TABLET DAILY BY MOUTH
     Dates: start: 20090901, end: 20100801

REACTIONS (3)
  - FATIGUE [None]
  - SUBCLAVIAN VEIN THROMBOSIS [None]
  - SWELLING [None]
